FAERS Safety Report 4603270-X (Version None)
Quarter: 2005Q1

REPORT INFORMATION
  Report Type: 
  Country: None (occurrence: None)
  Receive Date: 20050308
  Receipt Date: 20050223
  Transmission Date: 20050727
  Serious: Yes (Hospitalization)
  Sender: FDA-Public Use
  Company Number: A033900

PATIENT
  Age: 31 Year
  Sex: Male

DRUGS (1)
  1. CARDENALIN (DOXAZOSIN) [Suspect]
     Indication: HYPERTENSION
     Dosage: 4 MG , DAILY, ORAL
     Route: 048
     Dates: end: 20000201

REACTIONS (3)
  - DRUG EFFECT DECREASED [None]
  - PRIAPISM [None]
  - THERAPY NON-RESPONDER [None]
